FAERS Safety Report 7902539 (Version 2)
Quarter: 2014Q1

REPORT INFORMATION
  Report Type: Spontaneous
  Country: US (occurrence: None)
  Receive Date: 20110301
  Receipt Date: 20140304
  Transmission Date: 20141002
  Serious: Yes (Hospitalization)
  Sender: FDA-Public Use
  Company Number: RB-16852-2010

PATIENT
  Age: 0 Day
  Sex: Female

DRUGS (1)
  1. SUBUTEX [Suspect]
     Indication: DRUG DEPENDENCE
     Dosage: (16 MG QD TRANSPLACENTAL)
     Route: 064
     Dates: start: 20100415, end: 20100916

REACTIONS (8)
  - Drug withdrawal syndrome neonatal [None]
  - Cyanosis [None]
  - Crying [None]
  - Pyrexia [None]
  - Nausea [None]
  - Vomiting [None]
  - Diarrhoea [None]
  - Foetal exposure during pregnancy [None]
